FAERS Safety Report 17591343 (Version 1)
Quarter: 2020Q1

REPORT INFORMATION
  Report Type: Spontaneous
  Country: US (occurrence: US)
  Receive Date: 20200327
  Receipt Date: 20200327
  Transmission Date: 20200409
  Serious: Yes (Death, Other)
  Sender: FDA-Public Use
  Company Number: US-SCIEGEN PHARMACEUTICALS INC-2020SCILIT00068

PATIENT
  Age: 19 Year

DRUGS (1)
  1. METFORMIN HYDROCHLORIDETABLETS [Suspect]
     Active Substance: METFORMIN HYDROCHLORIDE

REACTIONS (5)
  - Mitochondrial cytopathy [Unknown]
  - Ventricular arrhythmia [Unknown]
  - Friedreich^s ataxia [Unknown]
  - Cardiac failure [Fatal]
  - Condition aggravated [Unknown]
